FAERS Safety Report 4967469-5 (Version None)
Quarter: 2006Q2

REPORT INFORMATION
  Report Type: 
  Country: None (occurrence: None)
  Receive Date: 20060407
  Receipt Date: 20060407
  Transmission Date: 20061013
  Serious: Yes (Hospitalization)
  Sender: FDA-Public Use
  Company Number: None

PATIENT
  Age: 88 Year
  Sex: Male

DRUGS (9)
  1. FUROSEMIDE [Suspect]
     Indication: CARDIAC FAILURE CONGESTIVE
     Dosage: 80 MG  BID
  2. METOLAZONE [Suspect]
     Indication: CHRONIC OBSTRUCTIVE PULMONARY DISEASE
     Dosage: 2.5 MG QOD
  3. MECLIZINE [Concomitant]
  4. GLIMEPIRIDE [Concomitant]
  5. LASIX [Concomitant]
  6. COZAAR [Concomitant]
  7. AVANDIA [Concomitant]
  8. CRESTOR [Concomitant]
  9. METOLAZONE [Concomitant]

REACTIONS (4)
  - BLOOD CREATININE INCREASED [None]
  - NAUSEA [None]
  - VERTIGO [None]
  - VOMITING [None]
